FAERS Safety Report 12982121 (Version 10)
Quarter: 2019Q4

REPORT INFORMATION
  Report Type: Spontaneous
  Country: US (occurrence: US)
  Receive Date: 20161129
  Receipt Date: 20191230
  Transmission Date: 20200122
  Serious: Yes (Congenital Anomaly, Other)
  Sender: FDA-Public Use
  Company Number: PHEH2016US031034

PATIENT
  Sex: Female

DRUGS (1)
  1. ZOFRAN [Suspect]
     Active Substance: ONDANSETRON HYDROCHLORIDE
     Indication: FOETAL EXPOSURE DURING PREGNANCY
     Dosage: MOTHER DOSE: 8 MG, PRN
     Route: 064

REACTIONS (29)
  - Tricuspid valve incompetence [Unknown]
  - Foetal exposure during pregnancy [Unknown]
  - Mitral valve incompetence [Unknown]
  - Dysuria [Unknown]
  - Asthma [Unknown]
  - Pharyngitis [Unknown]
  - Injury [Unknown]
  - Rhinitis [Unknown]
  - Chronic sinusitis [Unknown]
  - Eustachian tube dysfunction [Unknown]
  - Right ventricular hypertrophy [Unknown]
  - Otitis media chronic [Unknown]
  - Cough [Unknown]
  - Goitre [Unknown]
  - Cardiac murmur [Unknown]
  - Constipation [Unknown]
  - Atrial septal defect [Unknown]
  - Vulvovaginitis [Unknown]
  - Rhinitis allergic [Unknown]
  - Heart disease congenital [Unknown]
  - Pharyngitis streptococcal [Unknown]
  - Urinary tract infection [Unknown]
  - Cardiomegaly [Unknown]
  - Pneumonia [Unknown]
  - Otitis media [Unknown]
  - Upper respiratory tract infection [Unknown]
  - Ear pain [Unknown]
  - Alopecia [Unknown]
  - Oropharyngeal pain [Unknown]
